FAERS Safety Report 8051305-7 (Version None)
Quarter: 2012Q1

REPORT INFORMATION
  Report Type: 
  Country: None (occurrence: None)
  Receive Date: 20120117
  Receipt Date: 20120116
  Transmission Date: 20120608
  Serious: Yes (Hospitalization)
  Sender: FDA-Public Use
  Company Number: IT-ABBOTT-12P-083-0889441-00

PATIENT
  Sex: Male

DRUGS (11)
  1. CANDESARTAN CILEXETIL [Suspect]
  2. BISOPROLOL FUMARATE [Suspect]
     Indication: HYPERTENSION
     Dosage: 2MG DAILY; 1 DAY
     Route: 048
     Dates: start: 20080101, end: 20111122
  3. ALLOPURINOL [Concomitant]
     Indication: HYPERURICAEMIA
     Route: 048
  4. TERAZOSIN HCL [Suspect]
     Indication: HYPERTENSION
     Dosage: 2MG DAILY; 1 DAY
     Route: 048
     Dates: start: 20090101, end: 20111122
  5. LASIX [Suspect]
     Indication: HYPERTENSION
     Dosage: 1 UNIT DAILY; 1 DAY
     Route: 048
     Dates: start: 20080801, end: 20111122
  6. CALCITRIOL [Concomitant]
     Indication: RENAL FAILURE CHRONIC
     Dosage: 0.5MICROGRAM
     Route: 048
  7. LEVOTHYROXINE SODIUM [Concomitant]
     Indication: HYPOTHYROIDISM
     Route: 048
  8. TICLOPIDINA [Concomitant]
     Indication: CARDIOVASCULAR EVENT PROPHYLAXIS
  9. CANDESARTAN CILEXETIL [Suspect]
     Indication: HYPERTENSION
     Route: 048
     Dates: start: 20090101, end: 20111111
  10. NITRODERM [Suspect]
     Indication: PROPHYLAXIS
     Dosage: 1 UNIT DAILY; 1 DAY
     Dates: start: 20090101, end: 20111122
  11. IRON [Concomitant]
     Indication: PRODUCT USED FOR UNKNOWN INDICATION

REACTIONS (2)
  - ORTHOSTATIC HYPOTENSION [None]
  - PRESYNCOPE [None]
